FAERS Safety Report 23521678 (Version 1)
Quarter: 2024Q1

REPORT INFORMATION
  Report Type: Spontaneous
  Country: IT (occurrence: IT)
  Receive Date: 20240214
  Receipt Date: 20240214
  Transmission Date: 20240410
  Serious: Yes (Other)
  Sender: FDA-Public Use
  Company Number: IT-ABBVIE-5492723

PATIENT
  Age: 81 Month
  Sex: Male

DRUGS (4)
  1. CYCLOPHOSPHAMIDE [Suspect]
     Active Substance: CYCLOPHOSPHAMIDE
     Indication: Neuroblastoma
     Dosage: 250.000MG/M2 QD
     Route: 065
     Dates: start: 2022, end: 2022
  2. TOPOTECAN [Suspect]
     Active Substance: TOPOTECAN HYDROCHLORIDE
     Indication: Neuroblastoma
     Dosage: 0.750MG/M2 QD
     Route: 065
     Dates: start: 2022, end: 2022
  3. VENETOCLAX [Suspect]
     Active Substance: VENETOCLAX
     Indication: Neuroblastoma
     Dosage: DAY 1
     Route: 048
     Dates: start: 2022, end: 2022
  4. VENETOCLAX [Suspect]
     Active Substance: VENETOCLAX
     Dosage: INCREASED TO 400 MG ADULT EQUIVALENT DOSE ON DAY 2
     Route: 048
     Dates: start: 2022, end: 2022

REACTIONS (5)
  - Febrile neutropenia [Recovered/Resolved]
  - Anaemia [Recovered/Resolved]
  - Thrombocytopenia [Recovered/Resolved]
  - Neutropenia [Recovered/Resolved]
  - Off label use [Unknown]

NARRATIVE: CASE EVENT DATE: 20220101
